FAERS Safety Report 6079510-X (Version None)
Quarter: 2009Q1

REPORT INFORMATION
  Report Type: 
  Country: None (occurrence: None)
  Receive Date: 20090217
  Receipt Date: 20090211
  Transmission Date: 20090719
  Serious: Yes (Hospitalization)
  Sender: FDA-Public Use
  Company Number: GB-RANBAXY-2009RR-21768

PATIENT

DRUGS (1)
  1. MELOXICAM [Suspect]
     Route: 065

REACTIONS (1)
  - RECTAL HAEMORRHAGE [None]
